FAERS Safety Report 26058588 (Version 1)
Quarter: 2025Q4

REPORT INFORMATION
  Report Type: Spontaneous
  Country: EU (occurrence: EU)
  Receive Date: 20251118
  Receipt Date: 20251118
  Transmission Date: 20260117
  Serious: Yes (Hospitalization, Other)
  Sender: MYLAN
  Company Number: None

PATIENT
  Age: 80 Year
  Sex: Male
  Weight: 110 kg

DRUGS (1)
  1. METFORMIN [Suspect]
     Active Substance: METFORMIN HYDROCHLORIDE
     Indication: Type 2 diabetes mellitus
     Dosage: 500 MILLIGRAM, BID (500 MG 1-0-1 (KIDNEY ADAPTED DOSE))
     Dates: start: 20200101, end: 20250922

REACTIONS (5)
  - Circulatory collapse [Recovering/Resolving]
  - Multiple organ dysfunction syndrome [Recovering/Resolving]
  - Lactic acidosis [Recovering/Resolving]
  - Renal impairment [Recovering/Resolving]
  - Dialysis [Unknown]

NARRATIVE: CASE EVENT DATE: 20250922
